FAERS Safety Report 6756309-X (Version None)
Quarter: 2010Q2

REPORT INFORMATION
  Report Type: 
  Country: None (occurrence: None)
  Receive Date: 20100604
  Receipt Date: 20100602
  Transmission Date: 20101027
  Serious: Yes (Death)
  Sender: FDA-Public Use
  Company Number: ES-ROCHE-703894

PATIENT
  Sex: Female
  Weight: 60 kg

DRUGS (3)
  1. TRASTUZUMAB [Suspect]
     Dosage: LAST DOSE PRIOR TO SAE: 13 MAY 2010.
     Route: 042
     Dates: start: 20100513
  2. PLACEBO [Suspect]
     Dosage: LAST DOSE PRIOR TO SAE: 12 MAY 2010
     Route: 042
     Dates: start: 20100512
  3. DOCETAXEL [Suspect]
     Dosage: DATE OF LAST DOSE PRIOR TO SAE: 13 MAY 2010.
     Route: 042
     Dates: start: 20100513

REACTIONS (1)
  - CEREBROVASCULAR ACCIDENT [None]
